FAERS Safety Report 7626108-5 (Version None)
Quarter: 2011Q3

REPORT INFORMATION
  Report Type: 
  Country: None (occurrence: None)
  Receive Date: 20110713
  Receipt Date: 20110628
  Transmission Date: 20111222
  Serious: Yes (Hospitalization)
  Sender: FDA-Public Use
  Company Number: 2011MA008263

PATIENT
  Age: 32 Year
  Sex: Male

DRUGS (14)
  1. METOPROLOL TARTRATE [Concomitant]
  2. IBUPROFEN [Suspect]
     Indication: PAIN
     Dosage: 800 MG, 1X
  3. LEVOTHYROXINE SODIUM [Concomitant]
  4. OXYCODONE AND ACETAMINOPHEN [Suspect]
     Indication: PAIN
     Dosage: 4 UNK, 1X, PO
     Route: 048
  5. ESOMEPRAZOLE MAGNESIUM [Concomitant]
  6. PROCHLORPERAZINE [Concomitant]
  7. TESTOSTERONE [Concomitant]
  8. OXYCODONE-ACETMINOPHEN [Concomitant]
  9. PHENTERMINE HYDROCHLORIDE [Suspect]
     Indication: APPETITE DISORDER
     Dosage: 37.5 MG, BID
  10. IRBESARTAN [Concomitant]
  11. METOCLOPRAMIDE [Concomitant]
  12. OXYCODONE HCL [Concomitant]
  13. HYDROCHLOROTHIAZIDE [Concomitant]
  14. DICYCLOMINE [Concomitant]

REACTIONS (23)
  - RHABDOMYOLYSIS [None]
  - BLOOD URINE PRESENT [None]
  - PAIN [None]
  - BLOOD BICARBONATE DECREASED [None]
  - HYPERURICAEMIA [None]
  - INCORRECT DOSE ADMINISTERED [None]
  - BACK PAIN [None]
  - GROIN PAIN [None]
  - BLOOD GLUCOSE INCREASED [None]
  - KIDNEY INFECTION [None]
  - LETHARGY [None]
  - RASH [None]
  - CELLULITIS [None]
  - BLOOD CALCIUM DECREASED [None]
  - DILATATION VENTRICULAR [None]
  - MUSCULOSKELETAL PAIN [None]
  - STAPHYLOCOCCAL INFECTION [None]
  - CALCULUS URINARY [None]
  - TREATMENT NONCOMPLIANCE [None]
  - ELECTROCARDIOGRAM T WAVE ABNORMAL [None]
  - PAROTITIS [None]
  - SINUS TACHYCARDIA [None]
  - RENAL FAILURE ACUTE [None]
